FAERS Safety Report 7495272-3 (Version None)
Quarter: 2011Q2

REPORT INFORMATION
  Report Type: 
  Country: None (occurrence: None)
  Receive Date: 20110523
  Receipt Date: 20110517
  Transmission Date: 20111010
  Serious: Yes (Death, Other)
  Sender: FDA-Public Use
  Company Number: GB-BRISTOL-MYERS SQUIBB COMPANY-15681943

PATIENT
  Age: 55 Year
  Sex: Male

DRUGS (11)
  1. EFAVIRENZ [Suspect]
  2. CYCLOPHOSPHAMIDE [Suspect]
     Indication: BURKITT'S LYMPHOMA
  3. ETOPOSIDE [Suspect]
     Indication: BURKITT'S LYMPHOMA
  4. CYTARABINE [Suspect]
     Indication: BURKITT'S LYMPHOMA
     Route: 037
  5. DOXORUBICIN HCL [Suspect]
     Indication: BURKITT'S LYMPHOMA
  6. MESNA [Suspect]
     Indication: BURKITT'S LYMPHOMA
  7. TENOFOVIR DISOPROXIL FUMARATE [Suspect]
  8. IFOSFAMIDE [Suspect]
     Indication: BURKITT'S LYMPHOMA
  9. VINCRISTINE SULFATE [Suspect]
     Indication: BURKITT'S LYMPHOMA
  10. METHOTREXATE SODIUM [Suspect]
     Indication: BURKITT'S LYMPHOMA
  11. EMTRICITABINE [Suspect]

REACTIONS (2)
  - BURKITT'S LYMPHOMA [None]
  - TOXICITY TO VARIOUS AGENTS [None]
